FAERS Safety Report 9618176 (Version 1)
Quarter: 2013Q4

REPORT INFORMATION
  Report Type: Report from Study
  Country: CL (occurrence: CL)
  Receive Date: 20131014
  Receipt Date: 20131014
  Transmission Date: 20140711
  Serious: Yes (Other)
  Sender: FDA-Public Use
  Company Number: CL-ROCHE-1288344

PATIENT
  Age: 50 Year
  Sex: Female
  Weight: 78 kg

DRUGS (3)
  1. HERCEPTIN [Suspect]
     Indication: BREAST CANCER
     Route: 042
     Dates: start: 20130211, end: 20131007
  2. PAMIDRONATE [Suspect]
     Indication: BREAST CANCER
     Route: 065
     Dates: start: 201209, end: 20131007
  3. LEVOTHYROXINE [Concomitant]
     Indication: HYPOTHYROIDISM
     Route: 048
     Dates: start: 2011

REACTIONS (2)
  - Drug ineffective [Unknown]
  - Metastasis [Not Recovered/Not Resolved]
